FAERS Safety Report 7361878-5 (Version None)
Quarter: 2011Q1

REPORT INFORMATION
  Report Type: 
  Country: None (occurrence: None)
  Receive Date: 20110315
  Receipt Date: 20110315
  Transmission Date: 20110831
  Serious: Yes (Life-Threatening, Hospitalization, Other)
  Sender: FDA-Public Use
  Company Number: None

PATIENT
  Sex: Female
  Weight: 71.8 kg

DRUGS (5)
  1. AVELOX [Suspect]
     Indication: BACTERIAL INFECTION
     Dosage: 400 MG 1X PER DAY ORAL
     Route: 048
     Dates: start: 20110304
  2. AVELOX [Suspect]
     Indication: BACTERIAL INFECTION
     Dosage: 400 MG 1X PER DAY ORAL
     Route: 048
     Dates: start: 20110305
  3. YASMIN [Concomitant]
  4. SYMBICORT [Concomitant]
  5. SINGULAIR [Concomitant]

REACTIONS (5)
  - SWOLLEN TONGUE [None]
  - SWELLING FACE [None]
  - LIP SWELLING [None]
  - RASH [None]
  - URTICARIA [None]
